FAERS Safety Report 12329543 (Version 1)
Quarter: 2016Q2

REPORT INFORMATION
  Report Type: Spontaneous
  Country: DK (occurrence: DK)
  Receive Date: 20160503
  Receipt Date: 20160503
  Transmission Date: 20160815
  Serious: Yes (Hospitalization)
  Sender: FDA-Public Use
  Company Number: PHHY2016DK058051

PATIENT
  Age: 43 Year
  Sex: Female

DRUGS (1)
  1. PANCILLIN [Suspect]
     Active Substance: PENICILLIN
     Indication: SKIN INFECTION
     Route: 048
     Dates: start: 20150530

REACTIONS (5)
  - Throat tightness [Recovered/Resolved]
  - Skin burning sensation [Recovered/Resolved]
  - Dermatitis allergic [Recovered/Resolved]
  - Dry throat [Recovered/Resolved]
  - Pruritus generalised [Recovered/Resolved]

NARRATIVE: CASE EVENT DATE: 20150530
